FAERS Safety Report 4948748-4 (Version None)
Quarter: 2006Q1

REPORT INFORMATION
  Report Type: 
  Country: None (occurrence: None)
  Receive Date: 20060315
  Receipt Date: 20060228
  Transmission Date: 20060701
  Serious: Yes (Hospitalization)
  Sender: FDA-Public Use
  Company Number: 2006-BP-02313RO

PATIENT
  Age: 70 Year
  Sex: Male

DRUGS (7)
  1. LITHIUM CARBONATE [Suspect]
     Indication: BIPOLAR DISORDER
     Dates: start: 19840101
  2. AMBIEN [Suspect]
     Indication: INSOMNIA
     Dosage: 10 MG (10 MG),
     Dates: start: 19940101
  3. PROZAC [Suspect]
     Indication: DEPRESSION
     Dates: start: 19850101
  4. TERAZOSIN (TERAZOSIN) [Concomitant]
  5. MICARDIS [Concomitant]
  6. DICLOFENAC (DICLOFENAC) [Concomitant]
  7. AMLODIPINE [Concomitant]

REACTIONS (4)
  - CARDIO-RESPIRATORY ARREST [None]
  - COMA [None]
  - DRUG TOXICITY [None]
  - FALL [None]
